FAERS Safety Report 22918249 (Version 3)
Quarter: 2023Q4

REPORT INFORMATION
  Report Type: Other
  Country: US (occurrence: US)
  Receive Date: 20230907
  Receipt Date: 20231118
  Transmission Date: 20240109
  Serious: No
  Sender: FDA-Public Use
  Company Number: US-TRAVERE-2023TVT00387

PATIENT
  Age: 75 Year
  Sex: Male

DRUGS (12)
  1. FILSPARI [Suspect]
     Active Substance: SPARSENTAN
     Indication: Haematuria
     Route: 048
     Dates: start: 20230629
  2. LORATADINE [Concomitant]
     Active Substance: LORATADINE
  3. FISH OIL [Concomitant]
     Active Substance: FISH OIL
  4. ASPIRIN [Concomitant]
     Active Substance: ASPIRIN
  5. ALLOPURINOL [Concomitant]
     Active Substance: ALLOPURINOL
  6. SPIRONOLACTONE [Concomitant]
     Active Substance: SPIRONOLACTONE
  7. SIMVASTATIN [Concomitant]
     Active Substance: SIMVASTATIN
  8. VALSARTAN [Concomitant]
     Active Substance: VALSARTAN
  9. AMLODIPINE BESYLATE [Concomitant]
     Active Substance: AMLODIPINE BESYLATE
  10. VITAMINS [Concomitant]
     Active Substance: VITAMINS
  11. VITAMIN D2 [Concomitant]
     Active Substance: ERGOCALCIFEROL
  12. DIETARY SUPPLEMENT\HERBALS\MILK THISTLE [Concomitant]
     Active Substance: MILK THISTLE

REACTIONS (4)
  - Hypotension [Recovered/Resolved]
  - Weight increased [Unknown]
  - Product use in unapproved indication [Unknown]
  - Drug ineffective [Unknown]
